FAERS Safety Report 13451350 (Version 1)
Quarter: 2017Q2

REPORT INFORMATION
  Report Type: Spontaneous
  Country: GB (occurrence: None)
  Receive Date: 20170417
  Receipt Date: 20170417
  Transmission Date: 20170830
  Serious: Yes (Other)
  Sender: FDA-Public Use
  Company Number: GB2017K2443SPO

PATIENT
  Sex: Female

DRUGS (12)
  1. RALNEA XL (ROPINIROLE) PROLONGED-RELEASE TABLET [Suspect]
     Active Substance: ROPINIROLE
  2. CO-BENELDOPA (BENSERAZIDE HYDROCHLORIDE, LEVODOPA) [Suspect]
     Active Substance: BENSERAZIDE HYDROCHLORIDE\LEVODOPA
  3. CYCLIZINE [Suspect]
     Active Substance: CYCLIZINE
  4. QUETIAPINE (QUETIAPINE) [Suspect]
     Active Substance: QUETIAPINE
  5. BISOPROLOL [Suspect]
     Active Substance: BISOPROLOL
  6. CITALOPRAM [Suspect]
     Active Substance: CITALOPRAM HYDROBROMIDE
  7. DOMPERIDONE [Suspect]
     Active Substance: DOMPERIDONE
  8. LANSOPRAZOLE GENERIC (LANSOPRAZOLE) UNKNOWN {LOT # UNKNOWN} ? [Suspect]
     Active Substance: LANSOPRAZOLE
  9. CEREZYME [Suspect]
     Active Substance: IMIGLUCERASE
     Route: 041
  10. LACTULOSE. [Suspect]
     Active Substance: LACTULOSE
  11. RIVASTIGMINE. [Suspect]
     Active Substance: RIVASTIGMINE
  12. SENNA [Suspect]
     Active Substance: SENNA LEAF\SENNOSIDES\SENNOSIDES A AND B

REACTIONS (2)
  - Dizziness [None]
  - Parkinson^s disease [None]
